FAERS Safety Report 8166755-8 (Version None)
Quarter: 2012Q1

REPORT INFORMATION
  Report Type: 
  Country: None (occurrence: None)
  Receive Date: 20120227
  Receipt Date: 20120216
  Transmission Date: 20120608
  Serious: Yes (Hospitalization)
  Sender: FDA-Public Use
  Company Number: NL-MPIJNJ-2012-01126

PATIENT

DRUGS (10)
  1. DIAZEPAM [Concomitant]
     Dosage: 5 MG, UNK
     Route: 048
  2. ASCAL                              /00002702/ [Concomitant]
     Dosage: 100 MG, UNK
     Route: 048
  3. OXYCODONE HCL [Concomitant]
     Dosage: 10 MG, UNK
  4. MOVICOLON [Concomitant]
  5. DEXAMETHASONE [Suspect]
     Indication: MULTIPLE MYELOMA
     Dosage: 40 MG, UNK
     Route: 048
     Dates: start: 20111212, end: 20120211
  6. PANTOPRAZOLE [Concomitant]
     Dosage: 20 MG, UNK
     Route: 048
  7. CYCLOPHOSPHAMIDE [Suspect]
     Indication: MULTIPLE MYELOMA
     Dosage: 500 MG/M2, UNK
     Route: 042
     Dates: start: 20111212, end: 20120206
  8. COTRIM [Concomitant]
     Dosage: 960 MG, UNK
     Route: 048
  9. VELCADE [Suspect]
     Indication: MULTIPLE MYELOMA
     Dosage: 1.3 MG/M2, UNK
     Route: 042
     Dates: start: 20111212, end: 20120209
  10. FLUCONAZOLE [Concomitant]
     Dosage: 200 MG, UNK
     Route: 048

REACTIONS (1)
  - PAIN [None]
